FAERS Safety Report 12412769 (Version 6)
Quarter: 2020Q1

REPORT INFORMATION
  Report Type: Spontaneous
  Country: US (occurrence: US)
  Receive Date: 20160527
  Receipt Date: 20200207
  Transmission Date: 20200409
  Serious: Yes (Other)
  Sender: FDA-Public Use
  Company Number: US-PFIZER INC-2016270868

PATIENT
  Age: 75 Year
  Sex: Female
  Weight: 65 kg

DRUGS (3)
  1. CELEBREX [Suspect]
     Active Substance: CELECOXIB
     Indication: RHEUMATOID ARTHRITIS
     Dosage: 200 MG, 1X/DAY
  2. METFORMIN [Concomitant]
     Active Substance: METFORMIN HYDROCHLORIDE
     Indication: TYPE 2 DIABETES MELLITUS
     Dosage: 500 MG, 2X/DAY
  3. CELEBREX [Suspect]
     Active Substance: CELECOXIB
     Indication: PSORIATIC ARTHROPATHY

REACTIONS (19)
  - Foot deformity [Not Recovered/Not Resolved]
  - Road traffic accident [Not Recovered/Not Resolved]
  - Gait disturbance [Not Recovered/Not Resolved]
  - Fall [Unknown]
  - Influenza [Unknown]
  - Arthropathy [Unknown]
  - Frustration tolerance decreased [Not Recovered/Not Resolved]
  - Brain injury [Not Recovered/Not Resolved]
  - Balance disorder [Not Recovered/Not Resolved]
  - Amnesia [Not Recovered/Not Resolved]
  - Dizziness postural [Not Recovered/Not Resolved]
  - Impaired driving ability [Not Recovered/Not Resolved]
  - Deafness [Not Recovered/Not Resolved]
  - Drug ineffective [Not Recovered/Not Resolved]
  - Weight increased [Not Recovered/Not Resolved]
  - Malaise [Not Recovered/Not Resolved]
  - Arthralgia [Unknown]
  - Pain in extremity [Unknown]
  - Confusional state [Not Recovered/Not Resolved]
